FAERS Safety Report 5420259-1 (Version None)
Quarter: 2007Q3

REPORT INFORMATION
  Report Type: 
  Country: None (occurrence: None)
  Receive Date: 20070718
  Receipt Date: 20060816
  Transmission Date: 20080115
  Serious: Yes (Hospitalization, Other)
  Sender: FDA-Public Use
  Company Number: 2006080463

PATIENT
  Age: 71 Year
  Sex: Male
  Weight: 113.3993 kg

DRUGS (1)
  1. CELEBREX [Suspect]
     Indication: BACK PAIN
     Dosage: 200 MG (1 IN 1 D)
     Dates: start: 20010121, end: 20040101

REACTIONS (1)
  - MYOCARDIAL INFARCTION [None]
